FAERS Safety Report 7126301-4 (Version None)
Quarter: 2010Q4

REPORT INFORMATION
  Report Type: 
  Country: None (occurrence: None)
  Receive Date: 20101129
  Receipt Date: 20101115
  Transmission Date: 20110411
  Serious: Yes (Hospitalization, Other)
  Sender: FDA-Public Use
  Company Number: US-ASTRAZENECA-2010SE52235

PATIENT
  Age: 30704 Day
  Sex: Female
  Weight: 45.4 kg

DRUGS (4)
  1. CRESTOR [Suspect]
     Indication: BLOOD CHOLESTEROL INCREASED
     Route: 048
     Dates: start: 20020101
  2. CRESTOR [Suspect]
     Route: 048
     Dates: start: 20101112
  3. METOPROLOL SUCCINATE [Concomitant]
     Indication: HYPERTENSION
  4. DETROL [Concomitant]
     Indication: BLADDER DISORDER

REACTIONS (2)
  - COLORECTAL CANCER [None]
  - INTESTINAL PERFORATION [None]
